FAERS Safety Report 7834519-8 (Version None)
Quarter: 2011Q4

REPORT INFORMATION
  Report Type: 
  Country: None (occurrence: None)
  Receive Date: 20111020
  Receipt Date: 20111012
  Transmission Date: 20120403
  Serious: Yes (Death)
  Sender: FDA-Public Use
  Company Number: 1000024681

PATIENT
  Age: 80 Year
  Sex: Female

DRUGS (5)
  1. LENDORMIN (BROTIZOLAM) (BROTIZOLAM) [Concomitant]
  2. MEMANTINE [Suspect]
     Indication: DEMENTIA ALZHEIMER'S TYPE
     Dosage: 5 MG (5 MG,1 IN 1 D),ORAL ; 10 MG (10 MG,1 IN 1 D),ORAL ; 15 MG (15 MG,1 IN 1 D),ORAL
     Route: 048
     Dates: start: 20111001, end: 20111003
  3. MEMANTINE [Suspect]
     Indication: DEMENTIA ALZHEIMER'S TYPE
     Dosage: 5 MG (5 MG,1 IN 1 D),ORAL ; 10 MG (10 MG,1 IN 1 D),ORAL ; 15 MG (15 MG,1 IN 1 D),ORAL
     Route: 048
     Dates: start: 20110922, end: 20110930
  4. MEMANTINE [Suspect]
     Indication: DEMENTIA ALZHEIMER'S TYPE
     Dosage: 5 MG (5 MG,1 IN 1 D),ORAL ; 10 MG (10 MG,1 IN 1 D),ORAL ; 15 MG (15 MG,1 IN 1 D),ORAL
     Route: 048
     Dates: start: 20110829, end: 20110921
  5. MYSLEE (ZOLPIDEM TARTATE) (ZOLPIDEM TARTRATE) [Concomitant]

REACTIONS (2)
  - FALL [None]
  - DIZZINESS [None]
